FAERS Safety Report 19957565 (Version 3)
Quarter: 2024Q1

REPORT INFORMATION
  Report Type: Spontaneous
  Country: DE (occurrence: DE)
  Receive Date: 20211014
  Receipt Date: 20240307
  Transmission Date: 20240409
  Serious: Yes (Hospitalization, Disabling, Other)
  Sender: FDA-Public Use
  Company Number: DE-002147023-NVSC2020DE007012

PATIENT
  Sex: Male
  Weight: 150 kg

DRUGS (70)
  1. VALSARTAN [Suspect]
     Active Substance: VALSARTAN
     Indication: Hypertension
     Dosage: UNK QD (IN THE MORNING)
     Route: 065
  2. VALSARTAN [Suspect]
     Active Substance: VALSARTAN
     Dosage: BID (ONCE IN EVENING (1-0-1)) QD(IN MORNING)
     Route: 065
  3. VALSARTAN [Suspect]
     Active Substance: VALSARTAN
     Dosage: 320 MG, QD (IN THE MORNING)
     Route: 065
  4. VALSARTAN [Suspect]
     Active Substance: VALSARTAN
     Indication: Hypertension
     Dosage: 320 MILLIGRAM
     Route: 065
  5. VALSARTAN [Suspect]
     Active Substance: VALSARTAN
     Dosage: 80 MG DATE: DEC-2014 TO 2015 IN THE MORNING
     Route: 065
  6. VALSARTAN [Suspect]
     Active Substance: VALSARTAN
     Dosage: 25 MILLIGRAM, QD (START DATE: 2015)
     Route: 065
  7. VALSARTAN [Suspect]
     Active Substance: VALSARTAN
     Dosage: 320/25 MG, QD (START DATE: 2015, END: MAY-2016)
     Route: 065
  8. VALSARTAN [Suspect]
     Active Substance: VALSARTAN
     Dosage: 320/25 MG, QD JUL-2016 TO APR-2017 IN THE MORNING
     Route: 065
  9. VALSARTAN [Suspect]
     Active Substance: VALSARTAN
     Dosage: 320/25 MG, QD JUL-2017 TO OCT-2017 IN THE MORNING
     Route: 065
  10. VALSARTAN [Suspect]
     Active Substance: VALSARTAN
     Dosage: 320/25 MG, QD JAN-2018 TO APR-2018 IN THE MORNING
     Route: 065
  11. VALSARTAN [Suspect]
     Active Substance: VALSARTAN
     Indication: Hypertension
     Dosage: 320MG / 25MG OCT-2017 TO JAN-2018IN THE MORNING
     Route: 065
  12. VALSARTAN [Suspect]
     Active Substance: VALSARTAN
     Dosage: 320MG / 25MG APR-2018 TO JUL-2018IN THE MORNING
     Route: 065
  13. VALSARTAN [Suspect]
     Active Substance: VALSARTAN
     Dosage: 320/25 MG, QD (DAILY IN THE MORNING)
     Route: 065
     Dates: end: 201605
  14. ENTRESTO [Suspect]
     Active Substance: SACUBITRIL\VALSARTAN
     Indication: Myocarditis
     Dosage: 200 MILLIGRAM, BID (97/103 MG, MORNING AND EVENING)
     Route: 065
  15. ENTRESTO [Suspect]
     Active Substance: SACUBITRIL\VALSARTAN
     Indication: Dilated cardiomyopathy
     Dosage: 100 MILLIGRAM, BID (49/51 MG, MORNING AND EVENING)
     Route: 065
  16. SPIRONOLACTONE [Suspect]
     Active Substance: SPIRONOLACTONE
     Indication: Cardiac failure
     Dosage: UNK
     Route: 065
  17. AMIODARONE [Suspect]
     Active Substance: AMIODARONE
     Indication: Atrial fibrillation
     Dosage: UNK
     Route: 065
  18. ALLOPURINOL [Concomitant]
     Active Substance: ALLOPURINOL
     Indication: Product used for unknown indication
     Dosage: 300 MG, QD (EVENING)
     Route: 065
  19. PANTOPRAZOLE [Concomitant]
     Active Substance: PANTOPRAZOLE
     Indication: Product used for unknown indication
     Dosage: 20 MILLIGRAM, QD (20 MG, QD)
     Route: 065
  20. OMEPRAZOLE [Concomitant]
     Active Substance: OMEPRAZOLE
     Indication: Product used for unknown indication
     Dosage: 20 MG, QD (MORNING)
     Route: 065
  21. DIPYRONE [Concomitant]
     Active Substance: DIPYRONE
     Indication: Product used for unknown indication
     Dosage: 4 DF, QD (500 MG / 30 GTT)
     Route: 065
  22. Novalgin [Concomitant]
     Indication: Product used for unknown indication
     Dosage: 500 MILLIGRAM (500 MG (4X DAILY IF NEEDED))
     Route: 065
  23. ARCOXIA [Concomitant]
     Active Substance: ETORICOXIB
     Indication: Product used for unknown indication
     Dosage: 90 MILLIGRAM, QD
     Route: 065
  24. ARCOXIA [Concomitant]
     Active Substance: ETORICOXIB
     Dosage: PRN, (UNK (AS NEEDED))
     Route: 065
  25. BISOPROLOL FUMARATE [Concomitant]
     Active Substance: BISOPROLOL FUMARATE
     Indication: Product used for unknown indication
     Dosage: UNK, QD (1/2 X 5 MG)
     Route: 065
  26. BISOPROLOL [Concomitant]
     Active Substance: BISOPROLOL\BISOPROLOL FUMARATE
     Indication: Product used for unknown indication
     Dosage: (2 DF (TWICE IN THE MORNING AND EVENING (2-0-2)
     Route: 065
  27. BISOPROLOL [Concomitant]
     Active Substance: BISOPROLOL\BISOPROLOL FUMARATE
     Dosage: 10 MILLIGRAM, QD (5 MG, BID (MORNING AND EVENING)
     Route: 065
  28. BISOPROLOL [Concomitant]
     Active Substance: BISOPROLOL\BISOPROLOL FUMARATE
     Dosage: UNK, QD (1.5X 2.5 MG, MORNING)
     Route: 065
  29. BISOPROLOL [Concomitant]
     Active Substance: BISOPROLOL\BISOPROLOL FUMARATE
     Dosage: 2.5 MILLIGRAM, QD
     Route: 065
  30. BISOPROLOL [Concomitant]
     Active Substance: BISOPROLOL\BISOPROLOL FUMARATE
     Dosage: UNK, AM
     Route: 065
  31. VALSARTAN [Concomitant]
     Active Substance: VALSARTAN
     Indication: Product used for unknown indication
     Dosage: UNK, QD (320/25 MG, IN MORNING)
     Route: 065
  32. VALSARTAN [Concomitant]
     Active Substance: VALSARTAN
     Dosage: 320MG / 25MG, QD (START DATE: APR-2018)
     Route: 065
     Dates: end: 201807
  33. PIROXICAM [Concomitant]
     Active Substance: PIROXICAM
     Indication: Product used for unknown indication
     Dosage: 20 MILLIGRAM
     Route: 065
     Dates: start: 201507
  34. MEPIVACAINE HYDROCHLORIDE [Concomitant]
     Active Substance: MEPIVACAINE HYDROCHLORIDE
     Indication: Biopsy bone marrow
     Dosage: UNK
     Route: 065
     Dates: start: 20150220, end: 20150220
  35. MEPIVACAINE HYDROCHLORIDE [Concomitant]
     Active Substance: MEPIVACAINE HYDROCHLORIDE
     Indication: Local anaesthesia
     Dosage: 15 ML WITH 1%
     Route: 065
     Dates: start: 20191218, end: 20191218
  36. FUROSEMIDE [Concomitant]
     Active Substance: FUROSEMIDE
     Indication: Product used for unknown indication
     Dosage: UNK (20)
     Route: 065
  37. FUROSEMIDE [Concomitant]
     Active Substance: FUROSEMIDE
     Dosage: 40 MILLIGRAM, QD (IN THE MORNING (1-0-0)
     Route: 065
     Dates: start: 201910
  38. FUROSEMIDE [Concomitant]
     Active Substance: FUROSEMIDE
     Dosage: 500 MILLIGRAM
     Route: 065
  39. TORSEMIDE [Concomitant]
     Active Substance: TORSEMIDE
     Indication: Product used for unknown indication
     Dosage: 40 MILLIGRAM, QD(ONCE DAILY IN THE MORNING (1-0-0))
     Route: 065
  40. TORSEMIDE [Concomitant]
     Active Substance: TORSEMIDE
     Dosage: 10 MILLIGRAM, BID (ONCE IN THE MORNING, ONCE AT NOON (1-1-0)
     Route: 065
  41. RAMIPRIL [Concomitant]
     Active Substance: RAMIPRIL
     Indication: Product used for unknown indication
     Dosage: 2.5 MILLIGRAM, QD(ONCE DAILY IN THE MORNING (1-0-0)
     Route: 065
  42. BISOPROLOL [Concomitant]
     Active Substance: BISOPROLOL\BISOPROLOL FUMARATE
     Indication: Product used for unknown indication
     Dosage: UNK, BID (IN THE MORNING, ONCE IN THE EVENING (1-0-1)
     Route: 065
     Dates: start: 201504
  43. FENTANYL [Concomitant]
     Active Substance: FENTANYL\FENTANYL CITRATE
     Indication: Product used for unknown indication
     Dosage: 25 MICROGRAM
     Route: 065
     Dates: start: 20150220, end: 20150220
  44. NITRENDIPINE [Concomitant]
     Active Substance: NITRENDIPINE
     Indication: Product used for unknown indication
     Dosage: UNK
     Route: 060
     Dates: start: 201910
  45. LASIX [Concomitant]
     Active Substance: FUROSEMIDE
     Indication: Product used for unknown indication
     Dosage: 40 MILLIGRAM (ONCE DOSE IN THE MORNING, HALF OF A DOSE AT NOON (1-1/2-0)
     Route: 042
     Dates: start: 201912, end: 201912
  46. LASIX [Concomitant]
     Active Substance: FUROSEMIDE
     Dosage: 20 MILLIGRAM
     Route: 042
     Dates: start: 201912, end: 201912
  47. ZOPICLONE [Concomitant]
     Active Substance: ZOPICLONE
     Indication: Product used for unknown indication
     Dosage: 7.5 MILLIGRAM, PRN
     Route: 048
  48. TORASEMIDE HEXAL [Concomitant]
     Indication: Product used for unknown indication
     Dosage: 10 MILLIGRAM
     Route: 065
     Dates: start: 201412
  49. HYDROCHLOROTHIAZIDE [Concomitant]
     Active Substance: HYDROCHLOROTHIAZIDE
     Indication: Product used for unknown indication
     Dosage: 2.5 MILLIGRAM, QD
     Route: 065
     Dates: start: 201410
  50. BISOPROLOL FUMARATE [Concomitant]
     Active Substance: BISOPROLOL FUMARATE
     Indication: Product used for unknown indication
     Dosage: 5 MILLIGRAM, BID
     Route: 048
  51. CANDESARTAN CILEXETIL [Concomitant]
     Active Substance: CANDESARTAN CILEXETIL
     Indication: Hypertension
     Dosage: UNK
     Route: 065
  52. AJMALINE [Concomitant]
     Active Substance: AJMALINE
     Indication: Hypertension
     Dosage: 80 MILLIGRAM
     Route: 065
     Dates: start: 20150220, end: 20150220
  53. JELLIPROCT [Concomitant]
     Indication: Product used for unknown indication
     Dosage: UNK
     Route: 065
     Dates: start: 201901
  54. NASIC CUR [Concomitant]
     Indication: Product used for unknown indication
     Dosage: UNK, AS NEEDED (NOSE)
     Route: 065
     Dates: start: 201911
  55. PROPOFOL [Concomitant]
     Active Substance: PROPOFOL
     Indication: Biopsy bone marrow
     Dosage: 2 PERCENT
     Route: 065
     Dates: start: 20150220, end: 20150220
  56. PROPOFOL [Concomitant]
     Active Substance: PROPOFOL
     Indication: Endoscopy
     Dosage: 310 MILLIGRAM
     Route: 065
     Dates: start: 20191218, end: 20191218
  57. PROPOFOL [Concomitant]
     Active Substance: PROPOFOL
     Indication: Anaesthesia
     Dosage: 280 MILLIGRAM
     Route: 065
     Dates: start: 20191213, end: 20191213
  58. RAMIPRIL [Concomitant]
     Active Substance: RAMIPRIL
     Indication: Product used for unknown indication
     Dosage: 5 MG (HALF OF A DOSAGE IN THE MORNING AND IN THE EVENING (0.5-0-0.5))
     Route: 065
     Dates: start: 201410
  59. OXYGEN [Concomitant]
     Active Substance: OXYGEN
     Indication: Biopsy bone marrow
     Dosage: 2 L UP TO 6 L
     Route: 065
     Dates: start: 20191218, end: 20191218
  60. Bepanthen [Concomitant]
     Indication: Biopsy bone marrow
     Dosage: UNK (WOUND AND HEALING, AS NEEDED)
     Route: 065
  61. VERAPAMIL HYDROCHLORIDE [Concomitant]
     Active Substance: VERAPAMIL HYDROCHLORIDE
     Indication: Product used for unknown indication
     Dosage: 120 MILLIGRAM, TID
     Route: 065
  62. HEPARIN [Concomitant]
     Active Substance: HEPARIN SODIUM
     Indication: Biopsy bone marrow
     Dosage: 15000 IU + 10000 IU
     Route: 042
     Dates: start: 20150220, end: 20150220
  63. AMIODARONE [Concomitant]
     Active Substance: AMIODARONE
     Indication: Product used for unknown indication
     Dosage: UNK (200)
     Route: 065
     Dates: start: 201411
  64. CANDESARTAN ABZ [Concomitant]
     Indication: Hypertension
     Dosage: 32 MILLIGRAM, QD(ONCE DAILY IN THE MORNING (1-0-0))
     Route: 065
  65. DEXAMETHASONE [Concomitant]
     Active Substance: DEXAMETHASONE
     Indication: Hypertension
     Dosage: 4 MILLIGRAM
     Route: 065
     Dates: start: 201507
  66. Novodigal [Concomitant]
     Indication: Product used for unknown indication
     Dosage: UNK 0.1, QD (ONCE IN THE MORNING (1-0-0))
     Route: 065
     Dates: start: 201410
  67. HYDROCHLOROTHIAZIDE [Concomitant]
     Active Substance: HYDROCHLOROTHIAZIDE
     Indication: Product used for unknown indication
     Dosage: 2.5 MILLIGRAM, BID
     Route: 065
  68. TORSEMIDE [Concomitant]
     Active Substance: TORSEMIDE
     Indication: Product used for unknown indication
     Dosage: UNK (ONE DOSE IN THE MORNING, HALF OF A DOSAGE AT NOON (1-1/2-0))
     Route: 065
     Dates: start: 201411
  69. TORSEMIDE [Concomitant]
     Active Substance: TORSEMIDE
     Dosage: 5 MILLIGRAM, QD
     Route: 065
  70. TORSEMIDE [Concomitant]
     Active Substance: TORSEMIDE
     Dosage: 5 MILLIGRAM, QD
     Route: 065

REACTIONS (101)
  - Breathing-related sleep disorder [Unknown]
  - Respiratory disorder [Unknown]
  - Cardiovascular disorder [Unknown]
  - Pulmonary congestion [Unknown]
  - Bundle branch block left [Unknown]
  - Ventricular extrasystoles [Unknown]
  - Cardiomegaly [Unknown]
  - Dilated cardiomyopathy [Unknown]
  - Cardiac dysfunction [Unknown]
  - Ejection fraction abnormal [Unknown]
  - Dyspnoea [Unknown]
  - Dyspnoea exertional [Unknown]
  - Obstructive sleep apnoea syndrome [Unknown]
  - Syncope [Unknown]
  - Cardiac failure [Unknown]
  - Leukaemia [Unknown]
  - Gastrointestinal tract adenoma [Unknown]
  - Sleep disorder [Unknown]
  - Gastrointestinal neoplasm [Unknown]
  - Blood thyroid stimulating hormone increased [Unknown]
  - Haemorrhoidal haemorrhage [Unknown]
  - General physical health deterioration [Unknown]
  - Pulmonary hypertension [Unknown]
  - Left ventricular dysfunction [Unknown]
  - Middle insomnia [Unknown]
  - Rectal polyp [Unknown]
  - Atrial fibrillation [Unknown]
  - Adenoma benign [Unknown]
  - Goitre [Unknown]
  - Waldenstrom^s macroglobulinaemia [Unknown]
  - Gastrointestinal dysplasia [Unknown]
  - Somnolence [Unknown]
  - Hyperhidrosis [Unknown]
  - Tachycardia [Unknown]
  - Skin mass [Unknown]
  - Insomnia [Unknown]
  - Dysphagia [Unknown]
  - Dizziness [Unknown]
  - Shock [Unknown]
  - Asthenia [Unknown]
  - Deafness [Unknown]
  - Drug abuse [Recovered/Resolved]
  - Mitral valve incompetence [Unknown]
  - Aortic valve incompetence [Unknown]
  - Ascites [Unknown]
  - Tricuspid valve incompetence [Unknown]
  - Hypothyroidism [Unknown]
  - Hyperthyroidism [Unknown]
  - Gastritis erosive [Unknown]
  - Rheumatoid arthritis [Unknown]
  - B-lymphocyte count increased [Unknown]
  - Escherichia bacteraemia [Unknown]
  - Sphincter of Oddi dysfunction [Unknown]
  - Small intestine adenocarcinoma [Unknown]
  - Developmental hip dysplasia [Unknown]
  - Acute kidney injury [Unknown]
  - Cholecystitis chronic [Unknown]
  - Multiple sclerosis [Unknown]
  - Myocarditis [Unknown]
  - Myocardial necrosis marker increased [Unknown]
  - Ventricular enlargement [Unknown]
  - Gait disturbance [Unknown]
  - Quality of life decreased [Unknown]
  - Gammopathy [Unknown]
  - Emotional distress [Unknown]
  - Ulcer [Recovered/Resolved]
  - Oedema peripheral [Recovering/Resolving]
  - Gastrooesophageal reflux disease [Unknown]
  - Body fat disorder [Unknown]
  - Blood uric acid increased [Unknown]
  - Motor dysfunction [Unknown]
  - Diverticulum intestinal [Unknown]
  - Depression [Unknown]
  - Gout [Unknown]
  - Urinary incontinence [Unknown]
  - Acarodermatitis [Recovered/Resolved]
  - Hepatomegaly [Unknown]
  - Sinonasal obstruction [Unknown]
  - Bronchitis [Unknown]
  - Discouragement [Unknown]
  - Memory impairment [Unknown]
  - Anxiety [Unknown]
  - Alcohol abuse [Recovered/Resolved]
  - Hepatic steatosis [Unknown]
  - Arthralgia [Unknown]
  - Peripheral swelling [Unknown]
  - Rash pruritic [Recovering/Resolving]
  - Cough [Unknown]
  - Nausea [Unknown]
  - Weight increased [Recovering/Resolving]
  - Fatigue [Unknown]
  - Hypotension [Unknown]
  - Tracheal disorder [Unknown]
  - Urinary tract infection [Unknown]
  - Inguinal hernia [Unknown]
  - Metabolic syndrome [Unknown]
  - Panic attack [Unknown]
  - Pruritus [Unknown]
  - Rectal neoplasm [Unknown]
  - Colon neoplasm [Unknown]
  - Product use in unapproved indication [Unknown]

NARRATIVE: CASE EVENT DATE: 20140101
